FAERS Safety Report 5968618-2 (Version None)
Quarter: 2008Q4

REPORT INFORMATION
  Report Type: 
  Country: None (occurrence: None)
  Receive Date: 20081126
  Receipt Date: 20081121
  Transmission Date: 20090506
  Serious: Yes (Hospitalization)
  Sender: FDA-Public Use
  Company Number: CG-MERCK-0811USA03642

PATIENT
  Age: 42 Year
  Sex: Male

DRUGS (1)
  1. STROMECTOL [Suspect]
     Indication: ONCHOCERCIASIS
     Route: 048
     Dates: start: 20080814, end: 20080814

REACTIONS (11)
  - ABDOMINAL PAIN [None]
  - ASTHENIA [None]
  - CONJUNCTIVAL HAEMORRHAGE [None]
  - DIARRHOEA [None]
  - DYSPNOEA [None]
  - IRRITABILITY [None]
  - RECTAL TENESMUS [None]
  - SKINFOLD MEASUREMENT [None]
  - THIRST [None]
  - VERTIGO [None]
  - VOMITING [None]
